FAERS Safety Report 5040186-1 (Version None)
Quarter: 2006Q2

REPORT INFORMATION
  Report Type: 
  Country: None (occurrence: None)
  Receive Date: 20060630
  Receipt Date: 20060621
  Transmission Date: 20061013
  Serious: Yes (Other)
  Sender: FDA-Public Use
  Company Number: 2006AC01218

PATIENT
  Age: 63 Year
  Sex: Female

DRUGS (3)
  1. ESOMEPRAZOLE [Suspect]
     Indication: GASTROOESOPHAGEAL REFLUX DISEASE
     Dosage: TAKEN FOR 3 WEEKS AT TIME OF DIAGNOSIS.
  2. ATORVASTATIN CALCIUM [Concomitant]
  3. IRBESARTAN [Concomitant]

REACTIONS (4)
  - HYPERSENSITIVITY [None]
  - IMMUNE SYSTEM DISORDER [None]
  - NEPHRITIS INTERSTITIAL [None]
  - RENAL FAILURE ACUTE [None]
